FAERS Safety Report 5857838-3 (Version None)
Quarter: 2008Q3

REPORT INFORMATION
  Report Type: 
  Country: None (occurrence: None)
  Receive Date: 20080822
  Receipt Date: 20080807
  Transmission Date: 20090109
  Serious: Yes (Other)
  Sender: FDA-Public Use
  Company Number: DSA_32295_2008

PATIENT
  Sex: Female

DRUGS (4)
  1. DILTIAZEM HYDROCHLORIDE [Suspect]
     Indication: AORTIC ANEURYSM
     Dosage: DF ORAL
     Route: 048
  2. KARDEGIC /00002703/ [Concomitant]
  3. STATIN [Concomitant]
  4. ISOPTIN [Concomitant]

REACTIONS (2)
  - CONSTIPATION [None]
  - PRIMARY HYPERALDOSTERONISM [None]
